FAERS Safety Report 9054949 (Version 1)
Quarter: 2013Q1

REPORT INFORMATION
  Report Type: Spontaneous
  Country: US (occurrence: US)
  Receive Date: 20130208
  Receipt Date: 20130208
  Transmission Date: 20140127
  Serious: No
  Sender: FDA-Public Use
  Company Number: US-009507513-1302USA002056

PATIENT
  Sex: 0

DRUGS (1)
  1. EMEND [Suspect]
     Dosage: UNK

REACTIONS (2)
  - Vein disorder [Unknown]
  - Phlebitis [Unknown]
